FAERS Safety Report 9154685 (Version 4)
Quarter: 2014Q1

REPORT INFORMATION
  Report Type: Report from Study
  Country: US (occurrence: US)
  Receive Date: 20130311
  Receipt Date: 20140207
  Transmission Date: 20141002
  Serious: Yes (Hospitalization, Other)
  Sender: FDA-Public Use
  Company Number: US-ALEXION PHARMACEUTICALS INC.-A201300392

PATIENT
  Age: 45 Year
  Sex: Male
  Weight: 97.5 kg

DRUGS (1)
  1. SOLIRIS [Suspect]
     Indication: PAROXYSMAL NOCTURNAL HAEMOGLOBINURIA
     Dosage: UNK
     Route: 042
     Dates: start: 201012

REACTIONS (9)
  - Haemoglobin decreased [Recovered/Resolved]
  - Transfusion [Unknown]
  - Splenomegaly [Not Recovered/Not Resolved]
  - Cardiomegaly [Unknown]
  - Abdominal hernia [Unknown]
  - Haemoglobinuria [Recovered/Resolved]
  - Increased appetite [Unknown]
  - Weight increased [Unknown]
  - Abdominal pain [Recovered/Resolved]
